FAERS Safety Report 13752168 (Version 1)
Quarter: 2017Q3

REPORT INFORMATION
  Report Type: Spontaneous
  Country: US (occurrence: US)
  Receive Date: 20170713
  Receipt Date: 20170713
  Transmission Date: 20171127
  Serious: No
  Sender: FDA-Public Use
  Company Number: US-JAZZ-2017-US-005857

PATIENT
  Sex: Female

DRUGS (27)
  1. XYREM [Suspect]
     Active Substance: SODIUM OXYBATE
     Indication: INSOMNIA
     Dosage: 2.25G, BID
     Route: 048
     Dates: start: 201003, end: 201003
  2. XYREM [Suspect]
     Active Substance: SODIUM OXYBATE
     Dosage: 4.5G, BID
     Route: 048
     Dates: start: 201409, end: 201512
  3. LORATADINE. [Concomitant]
     Active Substance: LORATADINE
  4. LYRICA [Concomitant]
     Active Substance: PREGABALIN
  5. ALPHA LIPOIC ACID [Concomitant]
     Active Substance: .ALPHA.-LIPOIC ACID
  6. LUNESTA [Concomitant]
     Active Substance: ESZOPICLONE
  7. MOBIC [Concomitant]
     Active Substance: MELOXICAM
  8. NEURONTIN [Concomitant]
     Active Substance: GABAPENTIN
  9. XYREM [Suspect]
     Active Substance: SODIUM OXYBATE
     Dosage: DOSE ADJUSTMENT
     Route: 048
     Dates: start: 201003, end: 201004
  10. HYDROMORPHONE [Concomitant]
     Active Substance: HYDROMORPHONE
  11. LORTAB [Concomitant]
     Active Substance: ACETAMINOPHEN\HYDROCODONE BITARTRATE
  12. AMBIEN [Concomitant]
     Active Substance: ZOLPIDEM TARTRATE
  13. LISINOPRIL. [Concomitant]
     Active Substance: LISINOPRIL
  14. ROZEREM [Concomitant]
     Active Substance: RAMELTEON
  15. SONATA                             /00061001/ [Concomitant]
  16. MIRALAX [Concomitant]
     Active Substance: POLYETHYLENE GLYCOL 3350
  17. SKELAXIN [Concomitant]
     Active Substance: METAXALONE
  18. CYMBALTA [Concomitant]
     Active Substance: DULOXETINE HYDROCHLORIDE
  19. LOVAZA [Concomitant]
     Active Substance: OMEGA-3-ACID ETHYL ESTERS
  20. NEXIUM [Concomitant]
     Active Substance: ESOMEPRAZOLE MAGNESIUM
  21. EVOXAC [Concomitant]
     Active Substance: CEVIMELINE HYDROCHLORIDE
  22. LEXAPRO [Concomitant]
     Active Substance: ESCITALOPRAM OXALATE
  23. SINGULAIR [Concomitant]
     Active Substance: MONTELUKAST SODIUM
  24. AMITIZA [Concomitant]
     Active Substance: LUBIPROSTONE
  25. CENESTIN [Concomitant]
     Active Substance: ESTROGENS, CONJUGATED SYNTHETIC A
  26. PERCOCET                           /00446701/ [Concomitant]
     Active Substance: ACETAMINOPHEN\OXYCODONE HYDROCHLORIDE\OXYCODONE TEREPHTHALATE
  27. ROBAXIN [Concomitant]
     Active Substance: METHOCARBAMOL

REACTIONS (1)
  - Amnesia [Unknown]
